FAERS Safety Report 4940606-4 (Version None)
Quarter: 2006Q1

REPORT INFORMATION
  Report Type: 
  Country: None (occurrence: None)
  Receive Date: 20060127
  Receipt Date: 20051019
  Transmission Date: 20060701
  Serious: Yes (Life-Threatening)
  Sender: FDA-Public Use
  Company Number: 2005RL000150

PATIENT
  Age: 96 Year
  Sex: Female

DRUGS (6)
  1. PROPAFENONE HYDROCHLORIDE [Suspect]
  2. ALLOPURINOL [Suspect]
  3. AMOXICILLIN W/CLAVULANIC ACID [Suspect]
  4. NICARDIPINE [Suspect]
  5. ENOXAPARIN SODIUM [Suspect]
  6. LEVOCETIRIZINE [Suspect]
     Indication: DRUG USE FOR UNKNOWN INDICATION

REACTIONS (1)
  - AGRANULOCYTOSIS [None]
